FAERS Safety Report 17064628 (Version 1)
Quarter: 2019Q4

REPORT INFORMATION
  Report Type: Report from Study
  Country: US (occurrence: US)
  Receive Date: 20191122
  Receipt Date: 20191122
  Transmission Date: 20200122
  Serious: Yes (Hospitalization)
  Sender: FDA-Public Use
  Company Number: US-ROCHE-2471496

PATIENT
  Sex: Female

DRUGS (3)
  1. PREDNISONE. [Concomitant]
     Active Substance: PREDNISONE
     Dosage: SUBCUTANEOUSLY EVERY OTHER WEEK
     Route: 058
  2. ACTEMRA [Suspect]
     Active Substance: TOCILIZUMAB
     Indication: RHEUMATOID ARTHRITIS
     Dosage: INJECT 162MG (0.9ML) SUBCUTANEOUSLY EVERY OTHER WE
     Route: 058
  3. SOTALOL. [Concomitant]
     Active Substance: SOTALOL

REACTIONS (5)
  - Vision blurred [Unknown]
  - Asthenia [Unknown]
  - Pharyngeal swelling [Unknown]
  - Dizziness [Unknown]
  - Atrial fibrillation [Unknown]
